FAERS Safety Report 5212960-X (Version None)
Quarter: 2007Q1

REPORT INFORMATION
  Report Type: 
  Country: None (occurrence: None)
  Receive Date: 20070116
  Receipt Date: 20070108
  Transmission Date: 20070707
  Serious: Yes (Hospitalization)
  Sender: FDA-Public Use
  Company Number: GXKR2007IT00561

PATIENT
  Age: 56 Year
  Sex: Male

DRUGS (17)
  1. CYCLOSPORINE [Suspect]
     Indication: IMMUNOSUPPRESSION
     Dosage: 250 MG
     Dates: start: 19950101
  2. FLUCONAZOLE [Suspect]
     Indication: PNEUMONIA
  3. EVEROLIMUS (EVEROLIMUS) [Suspect]
     Dosage: SEE IMAGE
  4. AZATHIOPRINE [Concomitant]
  5. PREDNISONE TAB [Concomitant]
  6. ANTITHYMOCYTE IMMUNOGLOBULIN (RABBIT) (ANTITHYMOCYTE IMMUNOGLOBULIN) ( [Concomitant]
  7. METHYLPREDNISOLONE [Concomitant]
  8. CAPTOPRIL [Concomitant]
  9. FUROSEMIDE [Concomitant]
  10. PRAVASTATIN [Concomitant]
  11. ASPIRIN [Concomitant]
  12. RAMIPRIL [Concomitant]
  13. ATENOLOL [Concomitant]
  14. TICLOPIDINE (TICLOPIDINE) [Concomitant]
  15. ATORVASTATIN CALCIUM [Concomitant]
  16. NIMESULIDE (NIMESULIDE) [Concomitant]
  17. CIPROFLOXACIN [Concomitant]

REACTIONS (13)
  - ACUTE MYOCARDIAL INFARCTION [None]
  - ANGIOPATHY [None]
  - CARDIAC DISORDER [None]
  - CORONARY ARTERY OCCLUSION [None]
  - DECREASED ACTIVITY [None]
  - DRUG INTERACTION [None]
  - DRUG LEVEL ABOVE THERAPEUTIC [None]
  - GRAFT COMPLICATION [None]
  - LEUKOPENIA [None]
  - NEPHROPATHY TOXIC [None]
  - PNEUMONIA [None]
  - RENAL FAILURE ACUTE [None]
  - VASCULAR GRAFT COMPLICATION [None]
